FAERS Safety Report 12239297 (Version 1)
Quarter: 2016Q2

REPORT INFORMATION
  Report Type: Other
  Country: DE (occurrence: DE)
  Receive Date: 20160405
  Receipt Date: 20160405
  Transmission Date: 20160815
  Serious: Yes (Hospitalization, Other)
  Sender: FDA-Public Use
  Company Number: DE-MYLANLABS-2016M1013525

PATIENT

DRUGS (4)
  1. MIRTAZAPINE MYLAN [Suspect]
     Active Substance: MIRTAZAPINE
     Dosage: SCHRITTWEISE REDUZIERUNG UM 0.5 MG ALLE VIER WOCHEN
     Route: 048
     Dates: start: 201506
  2. MIRTAZAPINE MYLAN [Suspect]
     Active Substance: MIRTAZAPINE
     Indication: DEPRESSION
     Dosage: 30 MG, UNK
     Route: 048
  3. MIRTAZAPINE MYLAN [Suspect]
     Active Substance: MIRTAZAPINE
     Dosage: REDUZIERUNG UM 2 MG ALLE DREI WOCHEN
     Route: 048
  4. MIRTAZAPIN [Concomitant]
     Active Substance: MIRTAZAPINE
     Indication: DEPRESSION
     Dosage: 30MG
     Route: 048
     Dates: start: 20130812

REACTIONS (16)
  - Dizziness [Not Recovered/Not Resolved]
  - Drug withdrawal syndrome [Not Recovered/Not Resolved]
  - Retching [Not Recovered/Not Resolved]
  - Anxiety [Not Recovered/Not Resolved]
  - Visual impairment [Not Recovered/Not Resolved]
  - Headache [Not Recovered/Not Resolved]
  - Panic attack [Not Recovered/Not Resolved]
  - Hyperhidrosis [Not Recovered/Not Resolved]
  - Nausea [Not Recovered/Not Resolved]
  - Peripheral vascular disorder [Not Recovered/Not Resolved]
  - Palpitations [Not Recovered/Not Resolved]
  - Tremor [Not Recovered/Not Resolved]
  - Constipation [Not Recovered/Not Resolved]
  - Disturbance in attention [Not Recovered/Not Resolved]
  - Myalgia [Not Recovered/Not Resolved]
  - Tinnitus [Not Recovered/Not Resolved]

NARRATIVE: CASE EVENT DATE: 20131015
